FAERS Safety Report 7532608-9 (Version None)
Quarter: 2011Q2

REPORT INFORMATION
  Report Type: 
  Country: None (occurrence: None)
  Receive Date: 20110608
  Receipt Date: 20110603
  Transmission Date: 20111010
  Serious: Yes (Hospitalization)
  Sender: FDA-Public Use
  Company Number: PHHY2011US34758

PATIENT
  Sex: Female

DRUGS (2)
  1. TARCEVA [Concomitant]
     Dosage: UNK
  2. EXJADE [Suspect]
     Indication: SICKLE CELL ANAEMIA
     Dosage: 1000 MG, QD
     Route: 048
     Dates: start: 20110417

REACTIONS (14)
  - FATIGUE [None]
  - HYPOPHAGIA [None]
  - DIARRHOEA [None]
  - EYE IRRITATION [None]
  - VOMITING [None]
  - ASTHENIA [None]
  - TINNITUS [None]
  - GASTROINTESTINAL HAEMORRHAGE [None]
  - LUNG INFECTION [None]
  - DEHYDRATION [None]
  - RED BLOOD CELL COUNT INCREASED [None]
  - NAUSEA [None]
  - PALPITATIONS [None]
  - DECREASED APPETITE [None]
